FAERS Safety Report 24857637 (Version 1)
Quarter: 2025Q1

REPORT INFORMATION
  Report Type: Spontaneous
  Country: US (occurrence: US)
  Receive Date: 20250117
  Receipt Date: 20250117
  Transmission Date: 20250408
  Serious: No
  Sender: PRAGMA PHARMACEUTICALS
  Company Number: US-PRAGMA-2024-US-057656

PATIENT
  Sex: Female

DRUGS (6)
  1. KEFLEX [Suspect]
     Active Substance: CEPHALEXIN
     Indication: Product used for unknown indication
  2. BACLOFEN [Concomitant]
     Active Substance: BACLOFEN
  3. ROBAXIN [Concomitant]
     Active Substance: METHOCARBAMOL
  4. GABAPENTIN [Concomitant]
     Active Substance: GABAPENTIN
  5. CARBAMAZEPINE [Concomitant]
     Active Substance: CARBAMAZEPINE
  6. MODERNA COVID-19 VACCINE [Concomitant]
     Active Substance: ELASOMERAN

REACTIONS (3)
  - Confusional state [Unknown]
  - Urticaria [Unknown]
  - Hypersensitivity [Unknown]
